FAERS Safety Report 11753035 (Version 2)
Quarter: 2015Q4

REPORT INFORMATION
  Report Type: Spontaneous
  Country: AR (occurrence: AR)
  Receive Date: 20151119
  Receipt Date: 20151202
  Transmission Date: 20160304
  Serious: Yes (Other)
  Sender: FDA-Public Use
  Company Number: AR-ROCHE-1663292

PATIENT
  Age: 35 Year
  Sex: Male

DRUGS (2)
  1. SERETIDE [Concomitant]
     Active Substance: FLUTICASONE FUROATE\SALMETEROL XINAFOATE
  2. XOLAIR [Suspect]
     Active Substance: OMALIZUMAB
     Indication: ASTHMA
     Dosage: 900 MG MONTHLY
     Route: 058

REACTIONS (3)
  - Haematoma [Unknown]
  - Muscle rupture [Unknown]
  - Lipoma [Unknown]

NARRATIVE: CASE EVENT DATE: 20151111
